FAERS Safety Report 15675352 (Version 1)
Quarter: 2018Q4

REPORT INFORMATION
  Report Type: Spontaneous
  Country: US (occurrence: US)
  Receive Date: 20181119
  Receipt Date: 20181119
  Transmission Date: 20190205
  Serious: Yes (Hospitalization)
  Sender: FDA-Public Use
  Company Number: None

PATIENT
  Sex: Female

DRUGS (11)
  1. IPRATROPIUM/SOL [Concomitant]
  2. DILITAZEM [Concomitant]
  3. HYDROCHLORO [Concomitant]
  4. LEVAQUIN [Concomitant]
     Active Substance: LEVOFLOXACIN
  5. PREDNSONE [Concomitant]
  6. XOLAIR [Suspect]
     Active Substance: OMALIZUMAB
     Indication: ASTHMA
     Route: 058
     Dates: start: 20180822
  7. ALPRAZOLAM. [Concomitant]
     Active Substance: ALPRAZOLAM
  8. ELIQUIS [Concomitant]
     Active Substance: APIXABAN
  9. MUCINEX [Concomitant]
     Active Substance: GUAIFENESIN
  10. TRICOR [Concomitant]
     Active Substance: FENOFIBRATE
  11. BREO ELLIPTA [Concomitant]
     Active Substance: FLUTICASONE FUROATE\VILANTEROL TRIFENATATE

REACTIONS (1)
  - Pneumonia [None]
